FAERS Safety Report 9835670 (Version 1)
Quarter: 2014Q1

REPORT INFORMATION
  Report Type: Report from Study
  Country: US (occurrence: US)
  Receive Date: 20140122
  Receipt Date: 20140122
  Transmission Date: 20141002
  Serious: Yes (Death, Other)
  Sender: FDA-Public Use
  Company Number: US-PURDUE-USA-2014-0110494

PATIENT
  Age: 47 Year
  Sex: Female

DRUGS (5)
  1. OXYCONTIN (NDA 22-272) [Suspect]
     Indication: PRODUCT USED FOR UNKNOWN INDICATION
     Route: 048
  2. AMPHETAMINE [Suspect]
     Indication: PRODUCT USED FOR UNKNOWN INDICATION
     Route: 065
  3. CANNABIS [Suspect]
     Indication: SUBSTANCE ABUSE
     Route: 065
  4. COCAINE [Suspect]
     Indication: SUBSTANCE ABUSE
     Route: 065
  5. TRICYCLIC ANTIDEPRESSANTS [Suspect]
     Indication: PRODUCT USED FOR UNKNOWN INDICATION
     Route: 065

REACTIONS (6)
  - Substance abuse [Unknown]
  - Cardiac arrest [Fatal]
  - Loss of consciousness [Unknown]
  - Rectal haemorrhage [Unknown]
  - Respiratory arrest [Unknown]
  - Tachycardia [Unknown]
